FAERS Safety Report 9682503 (Version 1)
Quarter: 2013Q4

REPORT INFORMATION
  Report Type: Spontaneous
  Country: US (occurrence: US)
  Receive Date: 20131112
  Receipt Date: 20131112
  Transmission Date: 20140711
  Serious: Yes (Hospitalization, Other)
  Sender: FDA-Public Use
  Company Number: US-JNJFOC-20131101756

PATIENT
  Sex: Female

DRUGS (4)
  1. REMICADE [Suspect]
     Indication: CROHN^S DISEASE
     Dosage: MONTH: MAY/JUNE; 1ST DOSE
     Route: 042
     Dates: start: 2013
  2. REMICADE [Suspect]
     Indication: CROHN^S DISEASE
     Dosage: ON INFLIIXMAB FOR ABOUT ONE YEAR
     Route: 042
     Dates: start: 2010
  3. PHENERGAN [Concomitant]
     Indication: PREMEDICATION
     Route: 065
  4. SYNTHROID [Concomitant]
     Route: 065

REACTIONS (5)
  - Pneumonia [Unknown]
  - Latent tuberculosis [Unknown]
  - Migraine [Unknown]
  - Nausea [Unknown]
  - Adverse drug reaction [Unknown]
